FAERS Safety Report 7760460-5 (Version None)
Quarter: 2011Q3

REPORT INFORMATION
  Report Type: 
  Country: None (occurrence: None)
  Receive Date: 20110919
  Receipt Date: 20110902
  Transmission Date: 20111222
  Serious: No
  Sender: FDA-Public Use
  Company Number: US-B.I. PHARMACEUTICALS,INC./RIDGEFIELD-2010-BP-14924BP

PATIENT
  Sex: Female

DRUGS (17)
  1. MERTFORMIN [Concomitant]
     Indication: DIABETES MELLITUS
     Dosage: 500 MG
     Route: 048
  2. METOPROLOL TARTRATE [Concomitant]
     Indication: HYPERTENSION
     Dosage: 50 MG
     Route: 048
  3. VERAPAMIL [Concomitant]
     Indication: HYPERTENSION
     Dosage: 5 MG
     Route: 048
  4. NEURONTIN [Concomitant]
     Indication: NEUROPATHY PERIPHERAL
     Dosage: 600 MG
     Route: 048
  5. AMITRIPTYLINE HCL [Concomitant]
     Indication: NEUROPATHY PERIPHERAL
     Dosage: 75 MG
     Route: 048
  6. PERCOCET [Concomitant]
     Route: 048
  7. SINGULAIR [Concomitant]
     Indication: SEASONAL ALLERGY
     Dosage: 10 MG
     Route: 048
  8. OXYCODONE HCL [Concomitant]
     Indication: INTERVERTEBRAL DISC DISORDER
     Route: 048
  9. FUROSEMIDE [Concomitant]
     Indication: HYPERTENSION
     Dosage: 40 MG
     Route: 048
  10. LIPITOR [Concomitant]
     Indication: BLOOD CHOLESTEROL INCREASED
     Dosage: 80 MG
     Route: 048
  11. AMBIEN [Concomitant]
     Indication: INSOMNIA
     Route: 048
  12. RAMIPRIL [Concomitant]
     Indication: HYPERTENSION
     Dosage: 2.5 NR
     Route: 048
  13. LEVOXYL [Concomitant]
     Indication: HYPOTHYROIDISM
     Route: 048
  14. XANAX [Concomitant]
     Indication: ANXIETY
     Dosage: 2 MG
     Route: 048
  15. PRADAXA [Suspect]
     Indication: ATRIAL FIBRILLATION
     Dosage: 300 MG
     Route: 048
     Dates: start: 20101123
  16. ZETIA [Concomitant]
     Indication: BLOOD CHOLESTEROL INCREASED
     Dosage: 10 MG
     Route: 048
  17. LIALDA [Concomitant]
     Indication: COLITIS ULCERATIVE
     Dosage: 4.8 G
     Route: 048

REACTIONS (4)
  - EPISTAXIS [None]
  - RECTAL HAEMORRHAGE [None]
  - MELAENA [None]
  - CONSTIPATION [None]
